FAERS Safety Report 15164074 (Version 3)
Quarter: 2018Q3

REPORT INFORMATION
  Report Type: Spontaneous
  Country: CH (occurrence: CH)
  Receive Date: 20180719
  Receipt Date: 20180920
  Transmission Date: 20181010
  Serious: Yes (Other)
  Sender: FDA-Public Use
  Company Number: CH-ACTELION-A-CH2018-175393

PATIENT
  Age: 49 Year
  Sex: Male

DRUGS (13)
  1. ASPIRIN CARDIO [Concomitant]
     Active Substance: ASPIRIN
     Dosage: 100 MG, OD
  2. TORASEMIDE [Concomitant]
     Active Substance: TORSEMIDE
     Indication: DIURETIC THERAPY
     Dosage: 200 MG, OD
  3. MORPHINE [Concomitant]
     Active Substance: MORPHINE
     Dosage: 10 GTT, Q12HRS
  4. FRAGMIN [Concomitant]
     Active Substance: DALTEPARIN SODIUM
     Dosage: 10000 IU, OD
  5. NEBILET [Concomitant]
     Active Substance: NEBIVOLOL
     Indication: BLOOD PRESSURE ABNORMAL
     Dosage: 5 MG, OD
  6. ATORVASTATIN [Concomitant]
     Active Substance: ATORVASTATIN
     Indication: BLOOD CHOLESTEROL
     Dosage: 20 MG, OD
  7. FOSRENOL [Concomitant]
     Active Substance: LANTHANUM CARBONATE
     Indication: BLOOD PHOSPHORUS
     Dosage: 750 MG, BID
  8. NOVALGIN [Concomitant]
     Dosage: 20 GTT, Q6HRS
  9. FENTANYL TRANSDERMAL SYSTEM [Concomitant]
     Active Substance: FENTANYL
     Dosage: 25 MCG, Q1HOUR
     Route: 062
  10. RENVELA [Concomitant]
     Active Substance: SEVELAMER CARBONATE
     Dosage: 2.4 G, BID
  11. CLOPIDOGREL [Concomitant]
     Active Substance: CLOPIDOGREL BISULFATE
     Dosage: 75 MG, OD
  12. NEURONTIN [Concomitant]
     Active Substance: GABAPENTIN
     Indication: PHANTOM PAIN
     Dosage: 100 MG, OD
  13. TRACLEER [Suspect]
     Active Substance: BOSENTAN
     Indication: SKIN ULCER
     Dosage: 125 MG, BID
     Route: 048
     Dates: start: 201411

REACTIONS (10)
  - Angiopathy [Unknown]
  - Device occlusion [Unknown]
  - Pain in extremity [Unknown]
  - Peripheral coldness [Unknown]
  - Arterial stenosis [Unknown]
  - Thrombectomy [Unknown]
  - Infection [Unknown]
  - Angioplasty [Unknown]
  - Catheter management [Unknown]
  - Necrosis [Unknown]

NARRATIVE: CASE EVENT DATE: 20150210
